FAERS Safety Report 23325454 (Version 1)
Quarter: 2023Q4

REPORT INFORMATION
  Report Type: Spontaneous
  Country: US (occurrence: US)
  Receive Date: 20231221
  Receipt Date: 20231221
  Transmission Date: 20240110
  Serious: No
  Sender: FDA-Public Use
  Company Number: US-SA-SAC20231215000222

PATIENT
  Age: 14 Year
  Sex: Male

DRUGS (2)
  1. DUPIXENT [Suspect]
     Active Substance: DUPILUMAB
     Indication: Dermatitis atopic
     Dosage: 1 DF, 1X, HAD ONE INJECTION INSTEAD OF TWO COMPLETED ON DAY
     Route: 058
     Dates: start: 20231119, end: 20231119
  2. DUPIXENT [Suspect]
     Active Substance: DUPILUMAB
     Dosage: 300 MG, 1 PEN ON DAY 15
     Route: 058
     Dates: start: 20231202

REACTIONS (5)
  - Eye allergy [Unknown]
  - Eye pruritus [Unknown]
  - Lacrimation increased [Unknown]
  - Incorrect dose administered [Unknown]
  - Inappropriate schedule of product administration [Unknown]

NARRATIVE: CASE EVENT DATE: 20230101
